FAERS Safety Report 14906870 (Version 1)
Quarter: 2018Q2

REPORT INFORMATION
  Report Type: Spontaneous
  Country: GB (occurrence: GB)
  Receive Date: 20180517
  Receipt Date: 20180517
  Transmission Date: 20180711
  Serious: Yes (Other)
  Sender: FDA-Public Use
  Company Number: GB-TEVA-2018-GB-893834

PATIENT
  Age: 34 Year
  Sex: Female
  Weight: 69 kg

DRUGS (4)
  1. CODEINE [Concomitant]
     Active Substance: CODEINE
     Indication: URINARY TRACT INFECTION
     Route: 065
  2. GESTINYL [Concomitant]
     Dosage: 1 DOSAGE FORMS DAILY; FOR 21 DAYS FOLLOWED BY 7 FREE DAYS. 20/75.
     Dates: start: 20171215
  3. TRIMETHOPRIM. [Suspect]
     Active Substance: TRIMETHOPRIM
     Route: 048
  4. SKINOREN [Concomitant]
     Active Substance: AZELAIC ACID
     Dosage: 2 DOSAGE FORMS DAILY;
     Dates: start: 20171229

REACTIONS (1)
  - Dystonia [Recovering/Resolving]

NARRATIVE: CASE EVENT DATE: 20180301
